FAERS Safety Report 19244835 (Version 5)
Quarter: 2021Q3

REPORT INFORMATION
  Report Type: Spontaneous
  Country: JP (occurrence: JP)
  Receive Date: 20210512
  Receipt Date: 20210903
  Transmission Date: 20211014
  Serious: Yes (Other)
  Sender: FDA-Public Use
  Company Number: NVSJ2021JP007036

PATIENT
  Age: 60 Year
  Sex: Male
  Weight: 73 kg

DRUGS (14)
  1. BAYASPIRIN [Concomitant]
     Active Substance: ASPIRIN
     Indication: PRODUCT USED FOR UNKNOWN INDICATION
     Dosage: 1 DF, QD
     Route: 048
     Dates: start: 20181005
  2. TIGASON [Concomitant]
     Indication: PUSTULAR PSORIASIS
     Dosage: 1 CAP 1X TO 6 CAP 2X (DEPENDING ON SYMPTOMS)
     Route: 048
     Dates: start: 20181030
  3. CLOPIDOGREL [Concomitant]
     Active Substance: CLOPIDOGREL BISULFATE
     Indication: PRODUCT USED FOR UNKNOWN INDICATION
     Dosage: 1 DF, QD
     Route: 048
     Dates: start: 20181005
  4. ROSUVASTATIN. [Concomitant]
     Active Substance: ROSUVASTATIN
     Indication: PRODUCT USED FOR UNKNOWN INDICATION
     Dosage: 1 DF
     Route: 048
     Dates: start: 20181005
  5. TIGASON [Concomitant]
     Dosage: 10 MG
     Route: 065
     Dates: start: 20201116
  6. AMLODIPINE [Concomitant]
     Active Substance: AMLODIPINE BESYLATE
     Indication: PRODUCT USED FOR UNKNOWN INDICATION
     Dosage: 1 DF, QD
     Route: 048
     Dates: start: 20181005
  7. HIRUDOID /OLD FORM/ [Concomitant]
     Indication: PUSTULAR PSORIASIS
     Dosage: UNK, BID
     Route: 003
     Dates: start: 20181030
  8. AZILVA [Concomitant]
     Active Substance: AZILSARTAN KAMEDOXOMIL
     Indication: PRODUCT USED FOR UNKNOWN INDICATION
     Dosage: 1 DF, QD
     Route: 048
     Dates: start: 20181005
  9. COSENTYX [Suspect]
     Active Substance: SECUKINUMAB
     Indication: PUSTULAR PSORIASIS
     Dosage: 300 MG, Q4W
     Route: 058
     Dates: start: 20181129, end: 20201106
  10. MYSER [Concomitant]
     Indication: PUSTULAR PSORIASIS
     Dosage: UNK, BID
     Route: 003
     Dates: start: 20181030
  11. TIGASON [Concomitant]
     Dosage: UNK
     Route: 065
     Dates: start: 20210506
  12. COSENTYX [Suspect]
     Active Substance: SECUKINUMAB
     Dosage: UNK
     Route: 058
     Dates: start: 20210604
  13. FAMOTIDINE. [Concomitant]
     Active Substance: FAMOTIDINE
     Indication: PRODUCT USED FOR UNKNOWN INDICATION
     Dosage: 2 DF, BID
     Route: 048
     Dates: start: 20181005
  14. CILOSTAZOL. [Concomitant]
     Active Substance: CILOSTAZOL
     Indication: PRODUCT USED FOR UNKNOWN INDICATION
     Dosage: 2 DF, BID
     Route: 048
     Dates: start: 20181005

REACTIONS (5)
  - Metastases to adrenals [Unknown]
  - Metastases to muscle [Unknown]
  - Lung adenocarcinoma stage IV [Not Recovered/Not Resolved]
  - Metastases to lymph nodes [Unknown]
  - Metastases to the mediastinum [Unknown]

NARRATIVE: CASE EVENT DATE: 20200925
